FAERS Safety Report 6267255-2 (Version None)
Quarter: 2009Q3

REPORT INFORMATION
  Report Type: 
  Country: None (occurrence: None)
  Receive Date: 20090714
  Receipt Date: 20090709
  Transmission Date: 20100115
  Serious: Yes (Hospitalization)
  Sender: FDA-Public Use
  Company Number: ES-PFIZER INC-2009233478

PATIENT
  Age: 71 Year

DRUGS (6)
  1. ZARATOR [Suspect]
     Indication: HYPERCHOLESTEROLAEMIA
     Dosage: 10 MG, 1X/DAY
     Route: 048
     Dates: start: 20000101, end: 20090219
  2. ZARATOR [Suspect]
     Dosage: 80 MG, 1X/DAY
     Dates: start: 20090220, end: 20090224
  3. IVABRADINE [Suspect]
     Indication: MYOCARDIAL ISCHAEMIA
     Dosage: 5 MG, UNK
     Route: 048
     Dates: start: 20090220, end: 20090223
  4. ADIRO [Concomitant]
     Dosage: 100 MG, 1X/DAY
     Route: 048
  5. METFORMIN HCL [Concomitant]
     Indication: DIABETES MELLITUS
     Dosage: UNK
     Route: 048
  6. EUGLUCON [Concomitant]
     Indication: DIABETES MELLITUS
     Dosage: UNK
     Route: 048

REACTIONS (3)
  - DYSPNOEA [None]
  - HALLUCINATION [None]
  - VISUAL IMPAIRMENT [None]
